FAERS Safety Report 12420645 (Version 6)
Quarter: 2017Q2

REPORT INFORMATION
  Report Type: Spontaneous
  Country: US (occurrence: US)
  Receive Date: 20160531
  Receipt Date: 20170404
  Transmission Date: 20170830
  Serious: Yes (Hospitalization)
  Sender: FDA-Public Use
  Company Number: US-JNJFOC-20160527780

PATIENT
  Age: 54 Year
  Sex: Female

DRUGS (1)
  1. XARELTO [Suspect]
     Active Substance: RIVAROXABAN
     Indication: DEEP VEIN THROMBOSIS
     Route: 048
     Dates: start: 20150601, end: 20150608

REACTIONS (3)
  - Upper gastrointestinal haemorrhage [Recovering/Resolving]
  - Cerebrovascular accident [Unknown]
  - Treatment failure [Unknown]

NARRATIVE: CASE EVENT DATE: 201506
